FAERS Safety Report 5375415-8 (Version None)
Quarter: 2007Q2

REPORT INFORMATION
  Report Type: 
  Country: None (occurrence: None)
  Receive Date: 20070629
  Receipt Date: 20070620
  Transmission Date: 20071010
  Serious: Yes (Other)
  Sender: FDA-Public Use
  Company Number: US-PFIZER INC-2007030012

PATIENT
  Sex: Male
  Weight: 64 kg

DRUGS (1)
  1. CELEBREX [Suspect]
     Indication: FACIAL PALSY
     Dates: start: 20061101, end: 20061201

REACTIONS (2)
  - CHOLESTASIS [None]
  - HEPATIC ENZYME INCREASED [None]
